FAERS Safety Report 24082662 (Version 1)
Quarter: 2024Q3

REPORT INFORMATION
  Report Type: Report from Study
  Country: DE (occurrence: DE)
  Receive Date: 20240712
  Receipt Date: 20240712
  Transmission Date: 20241017
  Serious: Yes (Hospitalization)
  Sender: ABBVIE
  Company Number: DE-ABBVIE-5831740

PATIENT
  Age: 49 Year
  Sex: Male
  Weight: 88 kg

DRUGS (12)
  1. RISANKIZUMAB [Suspect]
     Active Substance: RISANKIZUMAB
     Indication: Crohn^s disease
     Route: 058
     Dates: start: 20231222
  2. RISANKIZUMAB [Suspect]
     Active Substance: RISANKIZUMAB
     Indication: Crohn^s disease
     Route: 042
     Dates: start: 20230929, end: 20231205
  3. ZINC [Concomitant]
     Active Substance: ZINC
     Indication: Haemorrhoids
     Dosage: TIME INTERVAL: AS NECESSARY: 1 APPLICATION
     Route: 003
     Dates: start: 202404
  4. PSYLLIUM [Concomitant]
     Active Substance: PLANTAGO SEED
     Indication: Crohn^s disease
     Dosage: 1 APPLICATION
     Route: 048
     Dates: start: 202312
  5. CHOLESTYRAMINE [Concomitant]
     Active Substance: CHOLESTYRAMINE
     Indication: Bile acid malabsorption
     Dosage: TIME INTERVAL: AS NECESSARY: 1 APPLICATION
     Route: 048
     Dates: start: 20231222
  6. HYDROGALEN [Concomitant]
     Indication: Rash
     Dosage: TIME INTERVAL: 0.33333333 DAYS: 1 APPLICATION
     Route: 003
     Dates: start: 20231030
  7. CORTISONE [Concomitant]
     Active Substance: CORTISONE
     Indication: Hypersensitivity
     Dosage: TIME INTERVAL: AS NECESSARY: 1 APPLICATION
     Route: 045
     Dates: start: 202104
  8. SYMBICORT [Concomitant]
     Active Substance: BUDESONIDE\FORMOTEROL FUMARATE DIHYDRATE
     Indication: Asthma
     Dosage: TIME INTERVAL: AS NECESSARY: 1 APPLICATION
     Route: 055
  9. INDAPAMIDE [Concomitant]
     Active Substance: INDAPAMIDE
     Indication: Hypertension
     Route: 048
  10. RAMIPRIL [Concomitant]
     Active Substance: RAMIPRIL
     Indication: Hypertension
     Route: 048
     Dates: start: 202010
  11. ESOMEPRAZOLE [Concomitant]
     Active Substance: ESOMEPRAZOLE
     Indication: Cardiac failure
     Dosage: TIME INTERVAL: AS NECESSARY
     Route: 048
  12. ALBUTEROL [Concomitant]
     Active Substance: ALBUTEROL
     Indication: Multiple allergies
     Dosage: TIME INTERVAL: AS NECESSARY: 1 APPLICATION
     Route: 055
     Dates: start: 2024

REACTIONS (1)
  - Post procedural haemorrhage [Recovered/Resolved]

NARRATIVE: CASE EVENT DATE: 20240703
